FAERS Safety Report 12748759 (Version 2)
Quarter: 2016Q4

REPORT INFORMATION
  Report Type: Report from Study
  Country: BR (occurrence: BR)
  Receive Date: 20160915
  Receipt Date: 20161013
  Transmission Date: 20170207
  Serious: Yes (Hospitalization, Other)
  Sender: FDA-Public Use
  Company Number: BR-BAXALTA-2016BLT006621

PATIENT
  Age: 39 Year
  Sex: Female
  Weight: 63 kg

DRUGS (2)
  1. FEIBA [Suspect]
     Active Substance: ANTI-INHIBITOR COAGULANT COMPLEX
     Dosage: 2500 IU FOR 10 DOSES
     Route: 065
  2. FEIBA [Suspect]
     Active Substance: ANTI-INHIBITOR COAGULANT COMPLEX
     Indication: HAEMOPHILIA
     Dosage: 2000 IU, UNK
     Route: 065

REACTIONS (4)
  - Pharyngeal haemorrhage [Unknown]
  - Laryngeal oedema [Unknown]
  - Laryngeal inflammation [Unknown]
  - Cough [Unknown]

NARRATIVE: CASE EVENT DATE: 201608
